FAERS Safety Report 24372217 (Version 2)
Quarter: 2024Q4

REPORT INFORMATION
  Report Type: Spontaneous
  Country: FR (occurrence: FR)
  Receive Date: 20240927
  Receipt Date: 20241022
  Transmission Date: 20250114
  Serious: Yes (Other)
  Sender: MERCK
  Company Number: None

PATIENT
  Age: 42 Year
  Sex: Female
  Weight: 73 kg

DRUGS (3)
  1. PEMBROLIZUMAB [Suspect]
     Active Substance: PEMBROLIZUMAB
     Indication: Breast cancer
     Dosage: 200 MILLIGRAM, Q3W
     Route: 042
     Dates: start: 20221201, end: 20230116
  2. CARBOPLATIN [Suspect]
     Active Substance: CARBOPLATIN
     Indication: Breast cancer
     Dosage: 700 MILLIGRAM, Q3W
     Route: 042
     Dates: start: 20221201, end: 20230213
  3. PACLITAXEL [Suspect]
     Active Substance: PACLITAXEL
     Indication: Breast cancer
     Dosage: 145 MILLIGRAM, Q3W
     Route: 042
     Dates: start: 20221201, end: 20230213

REACTIONS (2)
  - Anaemia [Recovered/Resolved]
  - Neutropenia [Recovered/Resolved]

NARRATIVE: CASE EVENT DATE: 20230216
